FAERS Safety Report 16664831 (Version 1)
Quarter: 2019Q3

REPORT INFORMATION
  Report Type: Spontaneous
  Country: GB (occurrence: GB)
  Receive Date: 20190803
  Receipt Date: 20190803
  Transmission Date: 20191004
  Serious: Yes (Other)
  Sender: FDA-Public Use
  Company Number: GB-AUROBINDO-AUR-APL-2019-044736

PATIENT

DRUGS (3)
  1. PAXIL [Suspect]
     Active Substance: PAROXETINE HYDROCHLORIDE
     Indication: PRODUCT USED FOR UNKNOWN INDICATION
     Dosage: 60 MG, UNK
     Route: 065
  2. TOPIRAMATE. [Suspect]
     Active Substance: TOPIRAMATE
     Indication: PRODUCT USED FOR UNKNOWN INDICATION
     Dosage: UNK
     Route: 065
  3. PAXIL [Suspect]
     Active Substance: PAROXETINE HYDROCHLORIDE
     Dosage: 50 MG, UNK
     Route: 065

REACTIONS (17)
  - Feeling abnormal [Unknown]
  - Clumsiness [Unknown]
  - Skin hypertrophy [Unknown]
  - Dermatitis [Unknown]
  - Memory impairment [Unknown]
  - Arthropathy [Unknown]
  - Disturbance in social behaviour [Unknown]
  - Psoriasis [Unknown]
  - Grip strength decreased [Unknown]
  - Rash [Unknown]
  - Incorrect dose administered [Unknown]
  - Psoriatic arthropathy [Unknown]
  - Hypertension [Unknown]
  - Cognitive disorder [Unknown]
  - Loss of personal independence in daily activities [Unknown]
  - Skin disorder [Unknown]
  - Peripheral swelling [Unknown]
